FAERS Safety Report 20858896 (Version 2)
Quarter: 2022Q4

REPORT INFORMATION
  Report Type: Spontaneous
  Country: JP (occurrence: JP)
  Receive Date: 20220522
  Receipt Date: 20221003
  Transmission Date: 20230113
  Serious: Yes (Other)
  Sender: FDA-Public Use
  Company Number: JP-TAKEDA-2022TJP050018

PATIENT
  Age: 80 Year
  Sex: Female
  Weight: 33.1 kg

DRUGS (3)
  1. TRINTELLIX [Suspect]
     Active Substance: VORTIOXETINE HYDROBROMIDE
     Indication: Persistent depressive disorder
     Dosage: 10 MILLIGRAM, QD
     Route: 048
     Dates: start: 20220329, end: 20220421
  2. SODIUM FERROUS CITRATE [Concomitant]
     Active Substance: SODIUM FERROUS CITRATE
     Indication: Iron deficiency anaemia
     Dosage: 50 MILLIGRAM, BID
     Route: 048
     Dates: start: 20210624
  3. HERBAL NOS [Concomitant]
     Active Substance: HERBALS
     Indication: Decreased appetite
     Dosage: 2.5 GRAM, BID
     Route: 048
     Dates: start: 20220308

REACTIONS (9)
  - Suicidal ideation [Recovered/Resolved]
  - Affective disorder [Unknown]
  - Condition aggravated [Unknown]
  - Head discomfort [Recovering/Resolving]
  - Memory impairment [Unknown]
  - Condition aggravated [Unknown]
  - Malaise [Unknown]
  - Headache [Unknown]
  - Nausea [Unknown]

NARRATIVE: CASE EVENT DATE: 20220410
